FAERS Safety Report 6831118-1 (Version None)
Quarter: 2010Q3

REPORT INFORMATION
  Report Type: 
  Country: None (occurrence: None)
  Receive Date: 20100712
  Receipt Date: 20100705
  Transmission Date: 20110219
  Serious: Yes (Hospitalization, Disabling, Other)
  Sender: FDA-Public Use
  Company Number: BR-BAYER-BR-2006-006154

PATIENT
  Age: 45 Year
  Sex: Female

DRUGS (4)
  1. BETAFERON [Suspect]
     Indication: MULTIPLE SCLEROSIS
     Dosage: TOTAL DAILY DOSE: 9.6 MIU
     Route: 058
     Dates: start: 20050401
  2. PURAN T4 [Concomitant]
     Indication: HYPOTHYROIDISM
     Dosage: TOTAL DAILY DOSE: 1 DF
     Route: 048
     Dates: start: 20090101
  3. ALENDRONATE SODIUM [Concomitant]
     Indication: OSTEOPOROSIS
     Route: 048
     Dates: start: 20090101
  4. RANITIDINE [Concomitant]
     Indication: PROPHYLAXIS
     Dosage: AS USED: 2 DF
     Route: 048

REACTIONS (7)
  - BALANCE DISORDER [None]
  - FALL [None]
  - FOOT DEFORMITY [None]
  - GAIT DISTURBANCE [None]
  - MULTIPLE SCLEROSIS RELAPSE [None]
  - MUSCULAR WEAKNESS [None]
  - TRAUMATIC FRACTURE [None]
